FAERS Safety Report 4550734-3 (Version None)
Quarter: 2004Q4

REPORT INFORMATION
  Report Type: 
  Country: None (occurrence: None)
  Receive Date: 20041217
  Receipt Date: 20040922
  Transmission Date: 20050328
  Serious: No
  Sender: FDA-Public Use
  Company Number: 2004-BP-08606BP

PATIENT
  Sex: Female

DRUGS (11)
  1. SPIRIVA [Suspect]
     Indication: CHRONIC OBSTRUCTIVE AIRWAYS DISEASE
     Dosage: 18 MCG *18 MCG) IH
     Route: 055
  2. COMBIVENT [Concomitant]
  3. ALBUTEROL [Concomitant]
  4. CLONIDINE [Concomitant]
  5. DIOVAN [Concomitant]
  6. NORVASC [Concomitant]
  7. SINGULAIR [Concomitant]
  8. HUMABID [Concomitant]
  9. FLOVENT [Concomitant]
  10. NASONEX [Concomitant]
  11. ACETYLSALICYLIC ACID SRT [Concomitant]

REACTIONS (2)
  - DRY MOUTH [None]
  - DYSPNOEA [None]
